FAERS Safety Report 4600566-2 (Version None)
Quarter: 2005Q1

REPORT INFORMATION
  Report Type: 
  Country: None (occurrence: None)
  Receive Date: 20050304
  Receipt Date: 20050217
  Transmission Date: 20050727
  Serious: Yes (Hospitalization)
  Sender: FDA-Public Use
  Company Number: 2004EU002087

PATIENT
  Age: 68 Year
  Sex: Male
  Weight: 99 kg

DRUGS (7)
  1. PROGRAF [Suspect]
     Indication: RENAL TRANSPLANT
     Dosage: 5.00 MG, BID, ORAL; 6.00 MG, D, ORAL
     Route: 048
     Dates: start: 20040925, end: 20041004
  2. PROGRAF [Suspect]
     Indication: RENAL TRANSPLANT
     Dosage: 5.00 MG, BID, ORAL; 6.00 MG, D, ORAL
     Route: 048
     Dates: start: 20041004
  3. OMEPRAZOLE [Suspect]
     Dosage: 20.00 MG, D
  4. PYOSTACINE(PRISTINAMYCIN) TABLET, 500MG [Suspect]
     Dosage: 1.00 G, BID, ORAL
     Route: 048
     Dates: start: 20041003, end: 20041004
  5. BACTRIM [Concomitant]
  6. PREVISCAN (FLUINDIONE) [Concomitant]
  7. CELLCEPT [Concomitant]

REACTIONS (4)
  - DRUG INTERACTION [None]
  - DRUG LEVEL INCREASED [None]
  - HYPERKALAEMIA [None]
  - RENAL FAILURE ACUTE [None]
